FAERS Safety Report 5056230-1 (Version None)
Quarter: 2006Q3

REPORT INFORMATION
  Report Type: 
  Country: None (occurrence: None)
  Receive Date: 20060717
  Receipt Date: 20060709
  Transmission Date: 20061208
  Serious: Yes (Death)
  Sender: FDA-Public Use
  Company Number: 2006-145364-NL

PATIENT
  Age: 95 Year
  Sex: Male

DRUGS (5)
  1. MIRTAZAPINE [Suspect]
     Indication: INSOMNIA
     Dosage: 15 MG
  2. PIPAMPERONE [Suspect]
     Dosage: 20 MG/30 MG/40 MG/60 MG
  3. QUETIAPINE FUMARATE [Suspect]
     Dosage: 12.5 MG
  4. QUETIAPINE FUMARATE [Concomitant]
  5. CLOMETHIAZOLE [Concomitant]

REACTIONS (29)
  - AGGRESSION [None]
  - AGITATION [None]
  - ASPARTATE AMINOTRANSFERASE INCREASED [None]
  - BLOOD CREATININE INCREASED [None]
  - BLOOD LACTATE DEHYDROGENASE INCREASED [None]
  - BLOOD MAGNESIUM DECREASED [None]
  - BLOOD POTASSIUM DECREASED [None]
  - BLOOD THYROID STIMULATING HORMONE DECREASED [None]
  - BLOOD UREA INCREASED [None]
  - C-REACTIVE PROTEIN INCREASED [None]
  - COMMUNICATION DISORDER [None]
  - DRUG INTERACTION [None]
  - DYSPHAGIA [None]
  - HAEMATOCRIT DECREASED [None]
  - HAEMOGLOBIN DECREASED [None]
  - HYPERAESTHESIA [None]
  - IMMOBILE [None]
  - INSOMNIA [None]
  - MOBILITY DECREASED [None]
  - MUSCULOSKELETAL STIFFNESS [None]
  - MUTISM [None]
  - NEUROLEPTIC MALIGNANT SYNDROME [None]
  - PAIN [None]
  - PARANOIA [None]
  - RED BLOOD CELL MICROCYTES PRESENT [None]
  - SEDATION [None]
  - SOMNOLENCE [None]
  - SPEECH DISORDER [None]
  - TREMOR [None]
